FAERS Safety Report 23450554 (Version 4)
Quarter: 2024Q1

REPORT INFORMATION
  Report Type: Spontaneous
  Country: US (occurrence: US)
  Receive Date: 20240129
  Receipt Date: 20240305
  Transmission Date: 20240410
  Serious: Yes (Death, Life-Threatening, Hospitalization)
  Sender: FDA-Public Use
  Company Number: US-Accord-400620

PATIENT
  Age: 79 Year
  Sex: Female
  Weight: 64.4 kg

DRUGS (31)
  1. CARBOPLATIN [Suspect]
     Active Substance: CARBOPLATIN
     Indication: Non-small cell lung cancer metastatic
     Dosage: 5AUC, 1Q3W
     Route: 042
     Dates: start: 20231026, end: 20231026
  2. PEMETREXED [Suspect]
     Active Substance: PEMETREXED
     Indication: Non-small cell lung cancer metastatic
     Dosage: 1Q3W
     Route: 042
     Dates: start: 20231026, end: 20231116
  3. PEMBROLIZUMAB [Concomitant]
     Active Substance: PEMBROLIZUMAB
     Indication: Non-small cell lung cancer metastatic
     Dosage: 1Q3W
     Route: 042
     Dates: start: 20231026, end: 20231215
  4. OMEPRAZOLE [Concomitant]
     Active Substance: OMEPRAZOLE
     Dates: start: 20010101
  5. ESCITALOPRAM [Concomitant]
     Active Substance: ESCITALOPRAM OXALATE
     Dates: start: 20000101
  6. OLMESARTAN [Concomitant]
     Active Substance: OLMESARTAN
     Dates: start: 20230401
  7. BUDESONIDE\FORMOTEROL FUMARATE [Concomitant]
     Active Substance: BUDESONIDE\FORMOTEROL FUMARATE
     Dates: start: 20221101
  8. ALBUTEROL SULFATE [Concomitant]
     Active Substance: ALBUTEROL SULFATE
     Dates: start: 20230601
  9. IRON [Concomitant]
     Active Substance: IRON
     Dates: start: 20230901
  10. SIMVASTATIN [Concomitant]
     Active Substance: SIMVASTATIN
     Dates: start: 20100101
  11. MONTELUKAST [Concomitant]
     Active Substance: MONTELUKAST SODIUM
     Dates: start: 20230301
  12. MIRTAZAPINE [Concomitant]
     Active Substance: MIRTAZAPINE
     Dates: start: 20230701
  13. LORAZEPAM [Concomitant]
     Active Substance: LORAZEPAM
     Dates: start: 20050101
  14. ACETAMINOPHEN [Concomitant]
     Active Substance: ACETAMINOPHEN
     Dates: start: 20180101
  15. BENADRYL [Concomitant]
     Active Substance: DIPHENHYDRAMINE HYDROCHLORIDE
     Dates: start: 20170101
  16. SIMETHICONE (DIMETHICONE) [Concomitant]
     Active Substance: DIMETHICONE
     Dates: start: 20010101
  17. TUMS [Concomitant]
     Active Substance: CALCIUM CARBONATE
     Dates: start: 20010101
  18. DICLOFENAC [Concomitant]
     Active Substance: DICLOFENAC
     Dates: start: 20230101
  19. CANNABIS SATIVA SUBSP. INDICA TOP [Concomitant]
     Active Substance: CANNABIS SATIVA SUBSP. INDICA TOP
     Dates: start: 20000101
  20. NITROFURANTOIN [Concomitant]
     Active Substance: NITROFURANTOIN
     Dates: start: 20231014
  21. FUROSEMIDE [Concomitant]
     Active Substance: FUROSEMIDE
     Dates: start: 20230401
  22. VITAMIN B12 [Concomitant]
     Active Substance: CYANOCOBALAMIN
     Dates: start: 20231020
  23. DEXAMETHASONE [Concomitant]
     Active Substance: DEXAMETHASONE
     Dates: start: 20231025
  24. ONDANSETRON [Concomitant]
     Active Substance: ONDANSETRON
     Dates: start: 20231025
  25. FOLIC ACID [Concomitant]
     Active Substance: FOLIC ACID
     Dates: start: 20231017
  26. PROCHLORPERAZINE [Concomitant]
     Active Substance: PROCHLORPERAZINE
     Dates: start: 20231102
  27. CHOLESTYRAMINE [Concomitant]
     Active Substance: CHOLESTYRAMINE
     Dates: start: 20231206
  28. MAGNESIUM SULFATE [Concomitant]
     Active Substance: MAGNESIUM SULFATE\MAGNESIUM SULFATE HEPTAHYDRATE
     Dates: start: 20231207
  29. CALCIUM [Concomitant]
     Active Substance: CALCIUM
     Dates: start: 20231207
  30. CARBOPLATIN [Suspect]
     Active Substance: CARBOPLATIN
     Indication: Non-small cell lung cancer metastatic
     Dosage: 4AUC, 1Q3W
     Route: 042
     Dates: start: 20231116, end: 20231215
  31. PEMETREXED [Suspect]
     Active Substance: PEMETREXED
     Indication: Non-small cell lung cancer metastatic
     Dosage: 1Q3W
     Route: 042
     Dates: start: 20231215, end: 20231215

REACTIONS (2)
  - Anaemia [Recovered/Resolved]
  - Pneumonia [Fatal]

NARRATIVE: CASE EVENT DATE: 20231221
